FAERS Safety Report 7703778-4 (Version None)
Quarter: 2011Q3

REPORT INFORMATION
  Report Type: 
  Country: None (occurrence: None)
  Receive Date: 20110823
  Receipt Date: 20110812
  Transmission Date: 20111222
  Serious: Yes (Other)
  Sender: FDA-Public Use
  Company Number: CA-JNJFOC-20110806967

PATIENT
  Sex: Male
  Weight: 80 kg

DRUGS (5)
  1. FLOVENT [Concomitant]
     Dosage: PUFFERS
     Route: 065
  2. REMICADE [Suspect]
     Indication: CROHN'S DISEASE
     Route: 042
     Dates: start: 20110812
  3. IMURAN [Concomitant]
     Indication: CROHN'S DISEASE
     Route: 065
  4. VITAMINS NOS [Concomitant]
     Route: 065
  5. REMICADE [Suspect]
     Route: 042
     Dates: start: 20060101

REACTIONS (1)
  - COLONIC STENOSIS [None]
